FAERS Safety Report 9174300 (Version 1)
Quarter: 2013Q1

REPORT INFORMATION
  Report Type: Spontaneous
  Country: DE (occurrence: DE)
  Receive Date: 20130320
  Receipt Date: 20130320
  Transmission Date: 20140127
  Serious: Yes (Other)
  Sender: FDA-Public Use
  Company Number: DE-JNJFOC-20130308313

PATIENT
  Sex: Male

DRUGS (1)
  1. XARELTO [Suspect]
     Indication: PROPHYLAXIS
     Route: 065

REACTIONS (2)
  - Pulmonary embolism [Unknown]
  - Drug ineffective [Unknown]
